FAERS Safety Report 20007820 (Version 1)
Quarter: 2021Q4

REPORT INFORMATION
  Report Type: Spontaneous
  Country: FR (occurrence: FR)
  Receive Date: 20211028
  Receipt Date: 20211028
  Transmission Date: 20220303
  Serious: Yes (Hospitalization)
  Sender: FDA-Public Use
  Company Number: None

PATIENT
  Age: 70 Year
  Sex: Male

DRUGS (2)
  1. CEFTRIAXONE [Suspect]
     Active Substance: CEFTRIAXONE
     Indication: Intervertebral discitis
     Dosage: 2GRAM
     Dates: start: 20210710, end: 20210727
  2. OFLOXACIN [Suspect]
     Active Substance: OFLOXACIN
     Indication: Intervertebral discitis
     Dosage: 200MILLIGRAM
     Route: 048
     Dates: start: 20210729, end: 20210812

REACTIONS (1)
  - Drug reaction with eosinophilia and systemic symptoms [Recovering/Resolving]

NARRATIVE: CASE EVENT DATE: 20210807
